FAERS Safety Report 17734694 (Version 6)
Quarter: 2020Q2

REPORT INFORMATION
  Report Type: Report from Study
  Country: US (occurrence: US)
  Receive Date: 20200501
  Receipt Date: 20200624
  Transmission Date: 20200714
  Serious: No
  Sender: FDA-Public Use
  Company Number: NVSC2020US118594

PATIENT
  Age: 50 Year
  Sex: Female

DRUGS (1)
  1. COSENTYX [Suspect]
     Active Substance: SECUKINUMAB
     Indication: PSORIATIC ARTHROPATHY
     Dosage: 300 MG, QW
     Route: 058
     Dates: start: 20200324

REACTIONS (6)
  - Tongue coated [Recovering/Resolving]
  - Rash [Recovering/Resolving]
  - Arthralgia [Unknown]
  - Pain in extremity [Unknown]
  - Oral candidiasis [Recovering/Resolving]
  - Oral pain [Recovering/Resolving]

NARRATIVE: CASE EVENT DATE: 20200415
